FAERS Safety Report 4945155-5 (Version None)
Quarter: 2006Q1

REPORT INFORMATION
  Report Type: 
  Country: None (occurrence: None)
  Receive Date: 20060117
  Receipt Date: 20050831
  Transmission Date: 20060701
  Serious: Yes (Hospitalization)
  Sender: FDA-Public Use
  Company Number: A03200403863

PATIENT
  Age: 79 Year
  Sex: Male
  Weight: 79.3795 kg

DRUGS (11)
  1. PLAVIX [Suspect]
     Indication: CEREBROVASCULAR ACCIDENT
     Dosage: 75 MG QD - ORAL
     Route: 048
     Dates: start: 20030101
  2. PLAVIX [Suspect]
     Indication: MYOCARDIAL INFARCTION
     Dosage: 75 MG QD - ORAL
     Route: 048
     Dates: start: 20030101
  3. ACETYLSALICYLIC ACID SRT [Suspect]
     Dosage: 81 MG QD - ORAL
     Route: 048
     Dates: start: 20010101
  4. ALEVE [Suspect]
     Indication: BACK PAIN
     Dosage: 440 MG - ORAL
     Route: 048
     Dates: start: 20041010, end: 20041015
  5. CILOSTAZOL [Concomitant]
  6. LOSARTAN + HYDROCHLOROTHIAZIDE [Concomitant]
  7. ISOSORBIDE MONONITRATE [Concomitant]
  8. SIMVASTATIN [Concomitant]
  9. VYTORIN [Concomitant]
  10. TAMSULOSIN HYDROCHLORIDE [Concomitant]
  11. FOLIC ACID [Concomitant]

REACTIONS (8)
  - ANAEMIA [None]
  - DUODENAL ULCER HAEMORRHAGE [None]
  - HYPOKALAEMIA [None]
  - POST PROCEDURAL HAEMORRHAGE [None]
  - RECTAL HAEMORRHAGE [None]
  - RENAL FAILURE [None]
  - RESPIRATORY FAILURE [None]
  - SEPSIS [None]
